FAERS Safety Report 23176323 (Version 1)
Quarter: 2023Q4

REPORT INFORMATION
  Report Type: Spontaneous
  Country: US (occurrence: US)
  Receive Date: 20231113
  Receipt Date: 20231113
  Transmission Date: 20240109
  Serious: No
  Sender: FDA-Public Use
  Company Number: US-drreddys-LIT/USA/23/0179244

PATIENT
  Age: 4 Decade
  Sex: Female

DRUGS (6)
  1. CIPROFLOXACIN [Suspect]
     Active Substance: CIPROFLOXACIN
     Indication: Evidence based treatment
     Route: 048
  2. AZITHROMYCIN [Suspect]
     Active Substance: AZITHROMYCIN
     Indication: Evidence based treatment
     Route: 042
  3. IMIPENEM [Suspect]
     Active Substance: IMIPENEM
     Indication: Evidence based treatment
  4. IMIPENEM [Suspect]
     Active Substance: IMIPENEM
     Route: 042
  5. COTRIMOXAZOLE [Suspect]
     Active Substance: SULFAMETHOXAZOLE\TRIMETHOPRIM
     Indication: Evidence based treatment
     Route: 042
  6. TEDIZOLID [Suspect]
     Active Substance: TEDIZOLID
     Indication: Evidence based treatment
     Route: 048

REACTIONS (1)
  - Gastrointestinal disorder [Unknown]
